FAERS Safety Report 6322706-X (Version None)
Quarter: 2009Q3

REPORT INFORMATION
  Report Type: 
  Country: None (occurrence: None)
  Receive Date: 20090824
  Receipt Date: 20090311
  Transmission Date: 20100115
  Serious: No
  Sender: FDA-Public Use
  Company Number: US-ABBOTT-09P-163-0562219-00

PATIENT
  Sex: Female

DRUGS (5)
  1. NIASPAN [Suspect]
     Indication: DRUG USE FOR UNKNOWN INDICATION
  2. ASPIRIN [Concomitant]
     Indication: DRUG USE FOR UNKNOWN INDICATION
  3. UNREPORTED HYPERTENSION MEDICATION [Concomitant]
     Indication: HYPERTENSION
  4. UNREPORTED HEART DISEASE MEDICATION [Concomitant]
     Indication: CARDIAC DISORDER
  5. UNREPORTED THYROID PROBLEMS MEDICATION [Concomitant]
     Indication: THYROID DISORDER

REACTIONS (5)
  - FEELING ABNORMAL [None]
  - FEELING HOT [None]
  - FLUSHING [None]
  - INSOMNIA [None]
  - PRURITUS [None]
